FAERS Safety Report 9844472 (Version 1)
Quarter: 2014Q1

REPORT INFORMATION
  Report Type: Spontaneous
  Country: US (occurrence: None)
  Receive Date: 20140123
  Receipt Date: 20140123
  Transmission Date: 20141002
  Serious: Yes (Other)
  Sender: FDA-Public Use
  Company Number: CL-549-2014

PATIENT
  Age: 77 Year
  Sex: Male

DRUGS (10)
  1. LEVOFLOXACIN [Suspect]
     Indication: CHOLECYSTITIS
  2. LEVOFLOXACIN [Suspect]
     Indication: ILEUS PARALYTIC
  3. CEFTAZIDIME [Suspect]
     Indication: ILEUS PARALYTIC
  4. CEFTAZIDIME [Suspect]
     Indication: CHOLECYSTITIS
  5. CLINDAMYCIN PHOSPHATE [Suspect]
     Indication: ILEUS PARALYTIC
  6. CLINDAMYCIN PHOSPHATE [Suspect]
     Indication: CHOLECYSTITIS
  7. VANCOMYCIN [Suspect]
     Indication: ILEUS PARALYTIC
  8. VANCOMYCIN [Suspect]
     Indication: CHOLECYSTITIS
  9. PANIPENEM [Suspect]
     Indication: CHOLECYSTITIS
  10. PANIPENEM [Suspect]
     Indication: ILEUS PARALYTIC

REACTIONS (1)
  - Drug reaction with eosinophilia and systemic symptoms [None]
